FAERS Safety Report 15493678 (Version 1)
Quarter: 2018Q4

REPORT INFORMATION
  Report Type: Spontaneous
  Country: US (occurrence: US)
  Receive Date: 20181012
  Receipt Date: 20181012
  Transmission Date: 20190205
  Serious: Yes (Hospitalization)
  Sender: FDA-Public Use
  Company Number: US-GLAXOSMITHKLINE-US2018181623

PATIENT
  Age: 52 Year
  Sex: Female

DRUGS (1)
  1. GAS-X EXTRA STRENGTH SOFTGELS [Suspect]
     Active Substance: DIMETHICONE
     Indication: GASTROOESOPHAGEAL REFLUX DISEASE
     Dosage: UNK
     Dates: start: 20181002, end: 20181002

REACTIONS (8)
  - Swelling face [Unknown]
  - Heart rate increased [Unknown]
  - Hypersensitivity [Unknown]
  - Tongue pruritus [Unknown]
  - Urticaria [Unknown]
  - Eye swelling [Unknown]
  - Product use in unapproved indication [Unknown]
  - Throat irritation [Unknown]

NARRATIVE: CASE EVENT DATE: 20181003
